FAERS Safety Report 19052626 (Version 1)
Quarter: 2021Q1

REPORT INFORMATION
  Report Type: Other
  Country: MY (occurrence: MY)
  Receive Date: 20210324
  Receipt Date: 20210324
  Transmission Date: 20210420
  Serious: Yes (Other)
  Sender: FDA-Public Use
  Company Number: MY-EMD SERONO-9226678

PATIENT
  Age: 27 Year
  Sex: Female

DRUGS (1)
  1. INTERFERON BETA?1A [Suspect]
     Active Substance: INTERFERON BETA-1A
     Indication: RELAPSING-REMITTING MULTIPLE SCLEROSIS

REACTIONS (3)
  - Systemic lupus erythematosus [Recovering/Resolving]
  - Pericardial effusion [Recovering/Resolving]
  - Bicytopenia [Recovered/Resolved]
